FAERS Safety Report 11349746 (Version 1)
Quarter: 2015Q3

REPORT INFORMATION
  Report Type: Spontaneous
  Country: US (occurrence: None)
  Receive Date: 20150806
  Receipt Date: 20150806
  Transmission Date: 20151125
  Serious: No
  Sender: FDA-Public Use
  Company Number: None

PATIENT
  Age: 36 Year
  Sex: Female
  Weight: 120.2 kg

DRUGS (5)
  1. MAGNESIUM [Concomitant]
     Active Substance: MAGNESIUM
  2. EXCEDRIN [Concomitant]
     Active Substance: ACETAMINOPHEN\ASPIRIN\CAFFEINE
  3. B2 [Concomitant]
  4. TOPAMAX [Suspect]
     Active Substance: TOPIRAMATE
     Indication: MIGRAINE
     Route: 048
  5. MAXALT [Suspect]
     Active Substance: RIZATRIPTAN BENZOATE

REACTIONS (10)
  - Cognitive disorder [None]
  - Crying [None]
  - Hypoaesthesia oral [None]
  - Depression [None]
  - Insomnia [None]
  - Mental impairment [None]
  - Glossodynia [None]
  - Apathy [None]
  - Fatigue [None]
  - Hypoaesthesia [None]

NARRATIVE: CASE EVENT DATE: 20150626
